FAERS Safety Report 8546069-4 (Version None)
Quarter: 2012Q3

REPORT INFORMATION
  Report Type: 
  Country: None (occurrence: None)
  Receive Date: 20120727
  Receipt Date: 20111206
  Transmission Date: 20120928
  Serious: No
  Sender: FDA-Public Use
  Company Number: US-ASTRAZENECA-2011SE74029

PATIENT
  Age: 15332 Day
  Sex: Female
  Weight: 97.5 kg

DRUGS (5)
  1. BENADRYL [Suspect]
     Indication: SLEEP DISORDER
  2. DEPAKOTE [Suspect]
     Indication: CONVULSION
     Route: 065
     Dates: start: 20110301
  3. CELEXA [Suspect]
     Indication: DEPRESSION
  4. GEODON [Suspect]
     Indication: BIPOLAR DISORDER
     Route: 065
  5. SEROQUEL [Suspect]
     Indication: SLEEP DISORDER
     Route: 048

REACTIONS (1)
  - DRUG SCREEN POSITIVE [None]
